FAERS Safety Report 5475439-6 (Version None)
Quarter: 2007Q4

REPORT INFORMATION
  Report Type: 
  Country: None (occurrence: None)
  Receive Date: 20071003
  Receipt Date: 20070921
  Transmission Date: 20080405
  Serious: Yes (Death)
  Sender: FDA-Public Use
  Company Number: JP-JNJFOC-20070905126

PATIENT
  Age: 5 Decade
  Sex: Female

DRUGS (5)
  1. RISPERIDONE [Suspect]
     Indication: SCHIZOPHRENIA
     Route: 048
  2. OLANZAPINE [Concomitant]
     Route: 048
  3. OLANZAPINE [Concomitant]
     Indication: SCHIZOPHRENIA
     Route: 048
  4. BIPERIDEN HYDROCHLORIDE TAB [Concomitant]
  5. CARBAMAZEPINE [Concomitant]
     Route: 048

REACTIONS (1)
  - DEATH [None]
